FAERS Safety Report 8301041-4 (Version None)
Quarter: 2012Q2

REPORT INFORMATION
  Report Type: 
  Country: None (occurrence: None)
  Receive Date: 20120420
  Receipt Date: 20120417
  Transmission Date: 20120825
  Serious: No
  Sender: FDA-Public Use
  Company Number: BE-SANOFI-AVENTIS-2011SA038253

PATIENT
  Age: 24 Year
  Sex: Female

DRUGS (3)
  1. HUMIRA [Concomitant]
  2. ARAVA [Suspect]
     Route: 065
     Dates: start: 20110501
  3. LEDERTREXATE /NET/ [Concomitant]

REACTIONS (1)
  - MATERNAL EXPOSURE DURING PREGNANCY [None]
